FAERS Safety Report 23103521 (Version 1)
Quarter: 2023Q4

REPORT INFORMATION
  Report Type: Spontaneous
  Country: US (occurrence: None)
  Receive Date: 20231024
  Receipt Date: 20231024
  Transmission Date: 20240109
  Serious: Yes (Hospitalization, Other)
  Sender: FDA-Public Use
  Company Number: None

PATIENT
  Age: 62 Year
  Sex: Male
  Weight: 67.3 kg

DRUGS (1)
  1. DOCETAXEL [Suspect]
     Active Substance: DOCETAXEL
     Indication: Prostate cancer
     Dosage: OTHER FREQUENCY : ONCE;?
     Route: 042
     Dates: start: 20231013

REACTIONS (8)
  - Diarrhoea [None]
  - Nausea [None]
  - Abdominal pain [None]
  - Pain [None]
  - Abdominal discomfort [None]
  - Hyperhidrosis [None]
  - Asthenia [None]
  - Chromaturia [None]

NARRATIVE: CASE EVENT DATE: 20231023
